FAERS Safety Report 7959213-4 (Version None)
Quarter: 2011Q4

REPORT INFORMATION
  Report Type: 
  Country: None (occurrence: None)
  Receive Date: 20111206
  Receipt Date: 20111202
  Transmission Date: 20120403
  Serious: Yes (Hospitalization)
  Sender: FDA-Public Use
  Company Number: JP-PFIZER INC-2011291372

PATIENT
  Age: 52 Year
  Sex: Male

DRUGS (2)
  1. ABILIFY [Concomitant]
     Dosage: UNK
  2. ZOLOFT [Suspect]
     Dosage: 50 MG, 1X/DAY
     Route: 048
     Dates: start: 20100101

REACTIONS (1)
  - AUTOIMMUNE PANCREATITIS [None]
